FAERS Safety Report 5254663-1 (Version None)
Quarter: 2007Q1

REPORT INFORMATION
  Report Type: 
  Country: None (occurrence: None)
  Receive Date: 20070302
  Receipt Date: 20070221
  Transmission Date: 20070707
  Serious: Yes (Other)
  Sender: FDA-Public Use
  Company Number: JP-PFIZER INC-2007015435

PATIENT

DRUGS (1)
  1. DETRUSITOL [Suspect]
     Dosage: DAILY DOSE:4MG
     Route: 048

REACTIONS (1)
  - ARRHYTHMIA [None]
